FAERS Safety Report 8456766-7 (Version None)
Quarter: 2012Q2

REPORT INFORMATION
  Report Type: 
  Country: None (occurrence: None)
  Receive Date: 20120621
  Receipt Date: 20120612
  Transmission Date: 20120825
  Serious: Yes (Life-Threatening, Hospitalization)
  Sender: FDA-Public Use
  Company Number: US-ACTELION-A-NJ2012-67221

PATIENT

DRUGS (2)
  1. TRACLEER [Suspect]
     Indication: PULMONARY ARTERIAL HYPERTENSION
     Dosage: UNK
     Route: 048
     Dates: start: 20110329
  2. TRACLEER [Suspect]
     Dosage: UNK
     Route: 048
     Dates: start: 20120101

REACTIONS (4)
  - RESPIRATORY FAILURE [None]
  - ENDOTRACHEAL INTUBATION [None]
  - TREATMENT NONCOMPLIANCE [None]
  - RENAL FAILURE [None]
